FAERS Safety Report 24457754 (Version 1)
Quarter: 2024Q4

REPORT INFORMATION
  Report Type: Spontaneous
  Country: CN (occurrence: CN)
  Receive Date: 20241018
  Receipt Date: 20241018
  Transmission Date: 20250115
  Serious: No
  Sender: ROCHE
  Company Number: CN-BoehringerIngelheim-2023-BI-259239

PATIENT
  Age: 78 Year
  Sex: Male
  Weight: 50.0 kg

DRUGS (3)
  1. ALTEPLASE [Suspect]
     Active Substance: ALTEPLASE
     Indication: Cerebral infarction
     Route: 042
     Dates: start: 20230805, end: 20230805
  2. ALTEPLASE [Suspect]
     Active Substance: ALTEPLASE
     Dosage: PUMP INJECTION
     Route: 040
     Dates: start: 20230805, end: 20230805
  3. WATER FOR INJECTION [Concomitant]
     Active Substance: WATER
     Indication: Drug therapy
     Route: 042
     Dates: start: 20230805, end: 20230805

REACTIONS (2)
  - Gingival bleeding [Recovering/Resolving]
  - Nausea [Recovered/Resolved]

NARRATIVE: CASE EVENT DATE: 20230805
